FAERS Safety Report 18915046 (Version 1)
Quarter: 2021Q1

REPORT INFORMATION
  Report Type: Report from Study
  Country: US (occurrence: US)
  Receive Date: 20210218
  Receipt Date: 20210218
  Transmission Date: 20210420
  Serious: No
  Sender: FDA-Public Use
  Company Number: US-AGIOS-2102US02514

PATIENT

DRUGS (10)
  1. AZACITIDINE. [Concomitant]
     Active Substance: AZACITIDINE
  2. FLUCONAZOLE. [Concomitant]
     Active Substance: FLUCONAZOLE
  3. DOCUSATE [Concomitant]
     Active Substance: DOCUSATE
  4. NAMENDA [Concomitant]
     Active Substance: MEMANTINE HYDROCHLORIDE
  5. CIPRO [Concomitant]
     Active Substance: CIPROFLOXACIN HYDROCHLORIDE
  6. ACYCLOVIR                          /00587301/ [Concomitant]
     Active Substance: ACYCLOVIR
  7. TIBSOVO [Suspect]
     Active Substance: IVOSIDENIB
     Indication: ACUTE LEUKAEMIA
     Dosage: 500 MILLIGRAM (2X250 MG), QD
     Route: 048
  8. TIBSOVO [Suspect]
     Active Substance: IVOSIDENIB
     Indication: PANCYTOPENIA
  9. METOPROLOL. [Concomitant]
     Active Substance: METOPROLOL
  10. PROTONIX                           /00661201/ [Concomitant]
     Active Substance: OMEPRAZOLE

REACTIONS (2)
  - Abdominal pain upper [Unknown]
  - Off label use [Unknown]
